FAERS Safety Report 10201062 (Version 1)
Quarter: 2014Q2

REPORT INFORMATION
  Report Type: Spontaneous
  Country: US (occurrence: US)
  Receive Date: 20140528
  Receipt Date: 20140528
  Transmission Date: 20141212
  Serious: Yes (Other)
  Sender: FDA-Public Use
  Company Number: US-SA-2014SA068149

PATIENT
  Sex: Male

DRUGS (2)
  1. ALLEGRA [Suspect]
     Indication: PRODUCT USED FOR UNKNOWN INDICATION
     Route: 048
  2. LITHIUM [Concomitant]

REACTIONS (4)
  - Dementia Alzheimer^s type [Unknown]
  - Productive cough [Unknown]
  - Red blood cell count decreased [Unknown]
  - Therapeutic response decreased [Unknown]
